FAERS Safety Report 9837577 (Version 2)
Quarter: 2014Q1

REPORT INFORMATION
  Report Type: Spontaneous
  Country: IT (occurrence: IT)
  Receive Date: 20140123
  Receipt Date: 20140310
  Transmission Date: 20141002
  Serious: Yes (Hospitalization)
  Sender: FDA-Public Use
  Company Number: PHHY2014IT005929

PATIENT
  Age: 37 Year
  Sex: Female

DRUGS (2)
  1. TEGRETOL [Suspect]
     Indication: POST-TRAUMATIC EPILEPSY
     Dosage: 600 MG, DAILY
     Route: 048
     Dates: start: 19780101, end: 20131226
  2. TEGRETOL [Suspect]
     Dosage: 300 MG, DAILY
     Route: 048
     Dates: start: 20131227

REACTIONS (3)
  - Asthenia [Recovering/Resolving]
  - Chromaturia [Recovering/Resolving]
  - Hepatotoxicity [Recovering/Resolving]
